FAERS Safety Report 4286679-6 (Version None)
Quarter: 2004Q1

REPORT INFORMATION
  Report Type: 
  Country: None (occurrence: None)
  Receive Date: 20040204
  Receipt Date: 20040122
  Transmission Date: 20041129
  Serious: Yes (Death, Other)
  Sender: FDA-Public Use
  Company Number: EMADSS2003003114

PATIENT
  Age: 68 Year
  Sex: Male

DRUGS (12)
  1. REMICADE [Suspect]
     Indication: RHEUMATOID ARTHRITIS
     Dosage: 300 MG, 1 IN 1 AS NCESSARY, INTRAVENOUS DRIP
     Route: 041
     Dates: start: 20020812, end: 20020812
  2. REMICADE [Suspect]
     Indication: RHEUMATOID ARTHRITIS
     Dosage: 300 MG, 1 IN 1 AS NCESSARY, INTRAVENOUS DRIP
     Route: 041
     Dates: start: 20030407, end: 20030407
  3. METHOTREXATE [Concomitant]
  4. PREDNISOLONE [Concomitant]
  5. FOSAMAX (ALENDRONATE SODIUM) TABLETS [Concomitant]
  6. ALFACALCIDOL (ALFACALCIDOL) CAPSULES [Concomitant]
  7. FUROSEMIDE (FUROSEMIDE) TABLETS [Concomitant]
  8. FOLIC ACID (FOLIC ACID) TABLETS [Concomitant]
  9. ALLOPURINOL (ALLOPURINOL) SUSPENSION [Concomitant]
  10. ATACAND [Concomitant]
  11. CALCIUM CARBONATE (CALCIUM CARBONATE) TABLETS [Concomitant]
  12. TERAZOSIN (TERAZOSIN) TABLETS [Concomitant]

REACTIONS (5)
  - ARTHROPOD BITE [None]
  - BRONCHITIS [None]
  - COMA [None]
  - MENINGOENCEPHALITIS HERPETIC [None]
  - SPINAL DISORDER [None]
